FAERS Safety Report 5196875-1 (Version None)
Quarter: 2006Q4

REPORT INFORMATION
  Report Type: 
  Country: None (occurrence: None)
  Receive Date: 20061227
  Receipt Date: 20061213
  Transmission Date: 20070319
  Serious: Yes (Hospitalization)
  Sender: FDA-Public Use
  Company Number: 2006-06188

PATIENT
  Age: 42 Year
  Sex: Female

DRUGS (1)
  1. DEXAMETHASONE [Suspect]
     Indication: ANTIINFLAMMATORY THERAPY
     Dosage: INTRAVENOUS
     Route: 042

REACTIONS (1)
  - TUMOUR LYSIS SYNDROME [None]
